FAERS Safety Report 7770946-5 (Version None)
Quarter: 2011Q3

REPORT INFORMATION
  Report Type: 
  Country: None (occurrence: None)
  Receive Date: 20110922
  Receipt Date: 20110111
  Transmission Date: 20111222
  Serious: No
  Sender: FDA-Public Use
  Company Number: US-ASTRAZENECA-2011SE02092

PATIENT
  Age: 50 Year
  Sex: Male
  Weight: 113.4 kg

DRUGS (8)
  1. LISINOPRIL [Concomitant]
  2. METOPROLOL TARTRATE [Concomitant]
  3. EFFEXOR [Concomitant]
  4. SEROQUEL XR [Suspect]
     Indication: BIPOLAR DISORDER
     Route: 048
  5. SIMVASTATIN [Concomitant]
  6. FOLIC ACID [Concomitant]
  7. KLONOPIN [Concomitant]
  8. WARFARIN SODIUM [Concomitant]

REACTIONS (9)
  - DRUG DOSE OMISSION [None]
  - FEELING ABNORMAL [None]
  - CHILLS [None]
  - WEIGHT DECREASED [None]
  - IMPAIRED DRIVING ABILITY [None]
  - DYSPHEMIA [None]
  - NERVOUSNESS [None]
  - HYPERHIDROSIS [None]
  - MUSCLE TWITCHING [None]
